FAERS Safety Report 4961491-0 (Version None)
Quarter: 2006Q1

REPORT INFORMATION
  Report Type: 
  Country: None (occurrence: None)
  Receive Date: 20060329
  Receipt Date: 20060317
  Transmission Date: 20060701
  Serious: Yes (Other)
  Sender: FDA-Public Use
  Company Number: 2006-DE-01449GD

PATIENT
  Age: 15 Year
  Sex: Male

DRUGS (10)
  1. INTERFERON GAMMA (INTERFERON GAMMA) [Suspect]
     Indication: BOVINE TUBERCULOSIS
     Dosage: 0.04 MG/M2 (NR, THREE TIMES A WEEK); SC, 0.1 MG/M2 (NR, THREE TIMES A WEEK), NR
     Route: 058
  2. CLARITHROMYCIN [Suspect]
     Indication: BOVINE TUBERCULOSIS
     Dosage: PO
     Route: 048
  3. OFLOXACIN (OFLOXCIN) [Suspect]
     Indication: BOVINE TUBERCULOSIS
     Dosage: PO
     Route: 048
  4. CLOFAZIMINE (CLOFAZIMINE) [Suspect]
     Indication: BOVINE TUBERCULOSIS
     Dosage: PO
     Route: 048
  5. RIFABUTIN (RIFABUTIN) [Suspect]
     Indication: BOVINE TUBERCULOSIS
     Dosage: PO
     Route: 048
  6. ETHIONAMIDE (ETHIONAMIDE) [Suspect]
     Indication: BOVINE TUBERCULOSIS
     Dosage: PO
     Route: 048
  7. CIPROFLOXACIN [Suspect]
     Indication: BOVINE TUBERCULOSIS
     Dosage: PO
     Route: 048
  8. STREPTOMYCIN [Suspect]
     Indication: BOVINE TUBERCULOSIS
     Dosage: IM
     Route: 030
  9. AMOXICILLIN-CLAVULANIC ACID (AMOXI-CLAVULANICO) [Suspect]
     Indication: BOVINE TUBERCULOSIS
     Dosage: PO
     Route: 048
  10. LINEZOLID (LINEZOLID) [Suspect]
     Indication: BOVINE TUBERCULOSIS
     Dosage: PO
     Route: 048

REACTIONS (9)
  - CHEST WALL MASS [None]
  - ENTERITIS [None]
  - GASTRITIS [None]
  - GENERAL PHYSICAL HEALTH DETERIORATION [None]
  - HELICOBACTER INFECTION [None]
  - NEUROPATHY PERIPHERAL [None]
  - OPTIC NEUROPATHY [None]
  - RESPIRATORY FAILURE [None]
  - STEATORRHOEA [None]
